FAERS Safety Report 4405198-7 (Version None)
Quarter: 2004Q3

REPORT INFORMATION
  Report Type: 
  Country: None (occurrence: None)
  Receive Date: 20040722
  Receipt Date: 20040722
  Transmission Date: 20050211
  Serious: No
  Sender: FDA-Public Use
  Company Number: None

PATIENT
  Sex: Female
  Weight: 85.2762 kg

DRUGS (1)
  1. PAROXETINE HCL [Suspect]

REACTIONS (4)
  - ANXIETY [None]
  - DEPRESSION [None]
  - GENERALISED ANXIETY DISORDER [None]
  - PHARMACEUTICAL PRODUCT COMPLAINT [None]
